FAERS Safety Report 21259104 (Version 1)
Quarter: 2022Q3

REPORT INFORMATION
  Report Type: Spontaneous
  Country: US (occurrence: US)
  Receive Date: 20220826
  Receipt Date: 20220826
  Transmission Date: 20221027
  Serious: Yes (Disabling, Other)
  Sender: FDA-Public Use
  Company Number: US-AMNEAL PHARMACEUTICALS-2022-AMRX-02358

PATIENT
  Age: 31 Year
  Sex: Female
  Weight: 68.027 kg

DRUGS (4)
  1. NORETHINDRONE ACETATE [Suspect]
     Active Substance: NORETHINDRONE ACETATE
     Indication: Abnormal uterine bleeding
     Dosage: 1 TABLETS(5MG), DAILY
     Route: 048
     Dates: start: 20181008, end: 202010
  2. NORETHINDRONE ACETATE [Suspect]
     Active Substance: NORETHINDRONE ACETATE
     Dosage: 1 TABLETS(5MG), DAILY
     Route: 048
  3. CLARITHROMYCIN [Concomitant]
     Active Substance: CLARITHROMYCIN
     Indication: Urinary tract infection
     Dosage: 1 CAPSULES(100MG), EVERY 12HR
     Route: 048
  4. METROGEL V [Concomitant]
     Indication: Product used for unknown indication
     Dosage: EVERY DAY AT BEDTIME FOR 5 DAYS 0.75%
     Route: 067

REACTIONS (3)
  - Brain neoplasm [Not Recovered/Not Resolved]
  - Visual snow syndrome [Not Recovered/Not Resolved]
  - Pituitary tumour [Not Recovered/Not Resolved]

NARRATIVE: CASE EVENT DATE: 20200811
